FAERS Safety Report 15811789 (Version 1)
Quarter: 2019Q1

REPORT INFORMATION
  Report Type: Spontaneous
  Country: DK (occurrence: DK)
  Receive Date: 20190111
  Receipt Date: 20190111
  Transmission Date: 20190417
  Serious: Yes (Hospitalization)
  Sender: FDA-Public Use
  Company Number: PHHY2019DK003193

PATIENT
  Age: 83 Year
  Sex: Male

DRUGS (5)
  1. METHOTREXATE (METHOTREXATE SODIUM) [Suspect]
     Active Substance: METHOTREXATE SODIUM
     Indication: RHEUMATOID ARTHRITIS
     Dosage: STYRKE: 2.5 MG
     Route: 048
     Dates: start: 20181116
  2. METHOTREXAT [Suspect]
     Active Substance: METHOTREXATE
     Indication: RHEUMATOID ARTHRITIS
     Dosage: STYRKE: 2.5 MG
     Route: 048
     Dates: start: 20180409, end: 20181116
  3. FOLIMET [Suspect]
     Active Substance: FOLIC ACID
     Indication: RHEUMATOID ARTHRITIS
     Dosage: STYRKE: 5 MG
     Route: 048
     Dates: start: 20180409
  4. ENTRESTO [Concomitant]
     Active Substance: SACUBITRIL\VALSARTAN
     Indication: HYPERTENSION
     Dosage: STYRKE: 49 MG + 51 MG.
     Route: 048
     Dates: start: 20181029
  5. ENALAPRIL [Concomitant]
     Active Substance: ENALAPRIL
     Indication: HYPERTENSION
     Dosage: STYRKE: 5 MG.
     Route: 048
     Dates: start: 20180117

REACTIONS (1)
  - Weight decreased [Unknown]
